FAERS Safety Report 7257836-1 (Version None)
Quarter: 2011Q1

REPORT INFORMATION
  Report Type: 
  Country: None (occurrence: None)
  Receive Date: 20110129
  Receipt Date: 20100513
  Transmission Date: 20110831
  Serious: No
  Sender: FDA-Public Use
  Company Number: US-ABBOTT-10P-163-0645146-00

PATIENT
  Sex: Female
  Weight: 68.1 kg

DRUGS (7)
  1. FENTANYL [Concomitant]
     Indication: PAIN
     Route: 062
     Dates: start: 20090101
  2. PERCOCET [Concomitant]
     Indication: PAIN
     Dates: start: 20100401
  3. PLAQUENIL [Concomitant]
     Indication: SYSTEMIC LUPUS ERYTHEMATOSUS
     Dates: start: 20090101
  4. WELLBUTRIN [Concomitant]
     Indication: DEPRESSION
     Dates: start: 20090101
  5. LAMICTAL [Concomitant]
     Indication: DEPRESSION
     Dates: start: 20090101
  6. HUMIRA [Suspect]
     Indication: SYSTEMIC LUPUS ERYTHEMATOSUS
     Dates: start: 20100424
  7. CLONIDINE [Concomitant]
     Indication: HYPERTENSION

REACTIONS (6)
  - INJECTION SITE PRURITUS [None]
  - EYE SWELLING [None]
  - INJECTION SITE SWELLING [None]
  - BLOOD PRESSURE INCREASED [None]
  - TINNITUS [None]
  - INJECTION SITE ERYTHEMA [None]
